FAERS Safety Report 8329924-X (Version None)
Quarter: 2012Q2

REPORT INFORMATION
  Report Type: 
  Country: None (occurrence: None)
  Receive Date: 20120502
  Receipt Date: 20091120
  Transmission Date: 20120825
  Serious: No
  Sender: FDA-Public Use
  Company Number: US-TEVA-2009029219

PATIENT
  Sex: Female
  Weight: 36.32 kg

DRUGS (9)
  1. PROMETRIUM [Concomitant]
     Indication: HORMONE REPLACEMENT THERAPY
     Dosage: 100 MILLIGRAM;
     Route: 048
     Dates: start: 20091022
  2. ESTRADIOL [Concomitant]
     Indication: HORMONE REPLACEMENT THERAPY
     Dosage: 2 MILLIGRAM;
     Route: 048
     Dates: start: 20091022
  3. GABAPENTIN [Concomitant]
     Indication: NERVE INJURY
     Dosage: 600 MILLIGRAM;
     Route: 048
     Dates: start: 20091022
  4. LEXAPRO [Concomitant]
     Indication: DEPRESSION
     Dosage: 80 MILLIGRAM;
     Route: 048
  5. NUVIGIL [Suspect]
     Indication: NARCOLEPSY
     Dosage: 150 MILLIGRAM;
     Route: 048
     Dates: start: 20091022
  6. VITAMIN TAB [Concomitant]
     Route: 048
     Dates: start: 20091022
  7. VALIUM [Concomitant]
     Dosage: 5 MILLIGRAM;
     Route: 048
  8. KLONOPIN [Concomitant]
     Indication: SLEEP DISORDER
     Dosage: 3 MILLIGRAM;
     Route: 048
     Dates: start: 20060101
  9. LEVOTHYROXINE SODIUM [Concomitant]
     Indication: HYPOTHYROIDISM
     Dosage: .125 MILLIGRAM;
     Route: 048
     Dates: start: 20091022

REACTIONS (5)
  - PROCTALGIA [None]
  - ABDOMINAL DISTENSION [None]
  - TONGUE DISCOLOURATION [None]
  - CONSTIPATION [None]
  - MUSCULOSKELETAL CHEST PAIN [None]
